FAERS Safety Report 11031690 (Version 1)
Quarter: 2015Q2

REPORT INFORMATION
  Report Type: Spontaneous
  Country: CN (occurrence: CN)
  Receive Date: 20150415
  Receipt Date: 20150415
  Transmission Date: 20150821
  Serious: Yes (Hospitalization)
  Sender: FDA-Public Use
  Company Number: PHHY2015CN044296

PATIENT
  Age: 43 Year
  Sex: Male

DRUGS (4)
  1. ISONIAZID. [Suspect]
     Active Substance: ISONIAZID
     Indication: MENINGITIS TUBERCULOUS
     Route: 065
  2. ETHAMBUTOL [Suspect]
     Active Substance: ETHAMBUTOL HYDROCHLORIDE
     Indication: MENINGITIS TUBERCULOUS
     Route: 065
  3. RIFAMPICIN [Suspect]
     Active Substance: RIFAMPIN
     Indication: MENINGITIS TUBERCULOUS
     Route: 065
  4. PYRAZINAMIDE. [Suspect]
     Active Substance: PYRAZINAMIDE
     Indication: MENINGITIS TUBERCULOUS
     Route: 065

REACTIONS (15)
  - Cardiac arrest [Recovered/Resolved]
  - Myocardial necrosis marker increased [Recovered/Resolved]
  - Diastolic dysfunction [Recovered/Resolved]
  - Pericardial effusion [Recovered/Resolved]
  - Eosinophilic myocarditis [Recovered/Resolved]
  - Irritability [Recovered/Resolved]
  - Chest pain [Recovered/Resolved]
  - Respiratory arrest [Recovered/Resolved]
  - Fatigue [Recovered/Resolved]
  - Liver disorder [Recovered/Resolved]
  - Pyrexia [Recovered/Resolved]
  - Eosinophil count increased [Recovered/Resolved]
  - Electrocardiogram T wave inversion [Recovered/Resolved]
  - Chest discomfort [Recovered/Resolved]
  - Chills [Recovered/Resolved]

NARRATIVE: CASE EVENT DATE: 20120306
